FAERS Safety Report 8512288-6 (Version None)
Quarter: 2012Q2

REPORT INFORMATION
  Report Type: 
  Country: None (occurrence: None)
  Receive Date: 20120405
  Receipt Date: 20080915
  Transmission Date: 20120825
  Serious: Yes (Other)
  Sender: FDA-Public Use
  Company Number: PHEH2008US08218

PATIENT
  Sex: Female

DRUGS (1)
  1. RECLAST [Suspect]
     Dosage: INFUSION
     Dates: start: 20080721

REACTIONS (14)
  - PYREXIA [None]
  - ABASIA [None]
  - MUSCULOSKELETAL STIFFNESS [None]
  - PAIN [None]
  - DIZZINESS [None]
  - DYSSTASIA [None]
  - NAUSEA [None]
  - NECK PAIN [None]
  - MALAISE [None]
  - FATIGUE [None]
  - DECREASED ACTIVITY [None]
  - CONSTIPATION [None]
  - HEADACHE [None]
  - ABDOMINAL PAIN UPPER [None]
